FAERS Safety Report 10243533 (Version 2)
Quarter: 2014Q3

REPORT INFORMATION
  Report Type: Spontaneous
  Country: US (occurrence: US)
  Receive Date: 20140618
  Receipt Date: 20140805
  Transmission Date: 20150326
  Serious: Yes (Hospitalization)
  Sender: FDA-Public Use
  Company Number: US-BAYER-2014-087467

PATIENT
  Age: 39 Year
  Sex: Female
  Weight: 85.71 kg

DRUGS (7)
  1. AVELOX [Suspect]
     Active Substance: MOXIFLOXACIN HYDROCHLORIDE
     Indication: INFLAMMATION
     Dosage: 1 DF, ONCE
     Route: 048
     Dates: start: 201404, end: 201404
  2. GABAPENTIN. [Concomitant]
     Active Substance: GABAPENTIN
     Dosage: 100 MG, QD
  3. LEVOTHYROXINE [Concomitant]
     Active Substance: LEVOTHYROXINE
     Dosage: 0.025 MG, QD
  4. TRAMADOL [Concomitant]
     Active Substance: TRAMADOL
  5. PRESERVISION EYE VITAMIN AND MINERAL SUPPL. [Concomitant]
     Dosage: UNK UNK, BID
  6. AVELOX [Suspect]
     Active Substance: MOXIFLOXACIN HYDROCHLORIDE
     Indication: RASH
  7. SORBITOL. [Concomitant]
     Active Substance: SORBITOL
     Dosage: 70 %, QD

REACTIONS (8)
  - Blood glucose decreased [Recovered/Resolved]
  - Blood pressure immeasurable [Recovered/Resolved]
  - Malaise [Not Recovered/Not Resolved]
  - Syncope [Recovered/Resolved]
  - Dizziness [None]
  - Adverse event [Recovered/Resolved]
  - Extrasystoles [Recovered/Resolved]
  - Fatigue [None]

NARRATIVE: CASE EVENT DATE: 2014
